FAERS Safety Report 15459239 (Version 5)
Quarter: 2019Q3

REPORT INFORMATION
  Report Type: Spontaneous
  Country: GB (occurrence: GB)
  Receive Date: 20181003
  Receipt Date: 20190930
  Transmission Date: 20191004
  Serious: Yes (Other)
  Sender: FDA-Public Use
  Company Number: GB-MYLANLABS-2018M1064801

PATIENT
  Age: 47 Year
  Sex: Female

DRUGS (1)
  1. CLOZARIL [Suspect]
     Active Substance: CLOZAPINE
     Indication: SCHIZOPHRENIA
     Dosage: UNK
     Route: 048
     Dates: start: 20020206

REACTIONS (2)
  - Anaemia [Not Recovered/Not Resolved]
  - Refusal of treatment by patient [Unknown]

NARRATIVE: CASE EVENT DATE: 2018
